FAERS Safety Report 5020475-7 (Version None)
Quarter: 2006Q2

REPORT INFORMATION
  Report Type: 
  Country: None (occurrence: None)
  Receive Date: 20060607
  Receipt Date: 20060413
  Transmission Date: 20061013
  Serious: Yes (Life-Threatening)
  Sender: FDA-Public Use
  Company Number: IT-SANOFI-SYNTHELABO-A06200600125

PATIENT
  Age: 66 Year
  Sex: Female

DRUGS (2)
  1. OXALIPLATINO [Suspect]
     Indication: COLON CANCER
     Route: 040
     Dates: start: 20060410, end: 20060410
  2. XELODA [Concomitant]
     Indication: COLON CANCER
     Route: 048
     Dates: start: 20060410, end: 20060410

REACTIONS (2)
  - LARYNGOSPASM [None]
  - PHARMACEUTICAL PRODUCT COMPLAINT [None]
